FAERS Safety Report 20404285 (Version 1)
Quarter: 2022Q1

REPORT INFORMATION
  Report Type: Spontaneous
  Country: US (occurrence: US)
  Receive Date: 20220131
  Receipt Date: 20220131
  Transmission Date: 20220423
  Serious: Yes (Other)
  Sender: FDA-Public Use
  Company Number: US-NOVOPROD-885985

PATIENT
  Sex: Female

DRUGS (2)
  1. NOVOLOG [Suspect]
     Active Substance: INSULIN ASPART
     Indication: Product used for unknown indication
     Dosage: SLIDING SCALE 20-25 UNIT
     Route: 058
     Dates: start: 2002
  2. TRESIBA [Suspect]
     Active Substance: INSULIN DEGLUDEC
     Indication: Product used for unknown indication
     Dosage: UNK
     Route: 058
     Dates: start: 2019

REACTIONS (3)
  - Cataract operation [Not Recovered/Not Resolved]
  - Ocular procedural complication [Not Recovered/Not Resolved]
  - Blindness [Not Recovered/Not Resolved]
